FAERS Safety Report 11215599 (Version 1)
Quarter: 2015Q2

REPORT INFORMATION
  Report Type: Spontaneous
  Country: US (occurrence: US)
  Receive Date: 20150624
  Receipt Date: 20150624
  Transmission Date: 20150821
  Serious: No
  Sender: FDA-Public Use
  Company Number: US-PFIZER INC-2015206315

PATIENT
  Age: 62 Year
  Sex: Female
  Weight: 90.7 kg

DRUGS (3)
  1. LYRICA [Suspect]
     Active Substance: PREGABALIN
     Indication: FIBROMYALGIA
     Dosage: (75 MG IN NIGHT, 50 MG IN MORNING), 2X/DAY
     Route: 048
     Dates: start: 20150226
  2. LYRICA [Suspect]
     Active Substance: PREGABALIN
     Indication: NEURALGIA
  3. LYRICA [Suspect]
     Active Substance: PREGABALIN
     Indication: POLYMYOSITIS

REACTIONS (2)
  - Dizziness [Recovered/Resolved]
  - Acrochordon [Unknown]

NARRATIVE: CASE EVENT DATE: 20150616
